FAERS Safety Report 9207608 (Version 2)
Quarter: 2014Q1

REPORT INFORMATION
  Report Type: Spontaneous
  Country: US (occurrence: US)
  Receive Date: 20130403
  Receipt Date: 20140131
  Transmission Date: 20141002
  Serious: Yes (Other)
  Sender: FDA-Public Use
  Company Number: US-BAYER-2013-040013

PATIENT
  Age: 31 Year
  Sex: Female
  Weight: 83.91 kg

DRUGS (6)
  1. YASMIN [Suspect]
     Dosage: UNK
     Dates: start: 2006
  2. YAZ [Suspect]
     Dosage: UNK
     Dates: start: 2006
  3. HYDROCODONE [Concomitant]
     Dosage: UNK
     Dates: start: 20071204
  4. PROMETHAZINE [Concomitant]
     Dosage: UNK
     Dates: start: 20071204
  5. AMITRIPTYLINE [Concomitant]
     Dosage: UNK
     Dates: start: 20071204
  6. PROZAC [Concomitant]
     Dosage: UNK
     Dates: start: 20071204

REACTIONS (7)
  - Cholecystitis chronic [None]
  - Gallbladder disorder [None]
  - Injury [None]
  - Pain [None]
  - Emotional distress [None]
  - Anxiety [None]
  - Psychological trauma [None]
